FAERS Safety Report 21109899 (Version 1)
Quarter: 2022Q3

REPORT INFORMATION
  Report Type: Spontaneous
  Country: CA (occurrence: CA)
  Receive Date: 20220721
  Receipt Date: 20220721
  Transmission Date: 20221027
  Serious: Yes (Life-Threatening, Hospitalization, Other)
  Sender: FDA-Public Use
  Company Number: None

PATIENT
  Age: 76 Year
  Sex: Male

DRUGS (1)
  1. ROSUVASTATIN CALCIUM [Suspect]
     Active Substance: ROSUVASTATIN CALCIUM
     Indication: Cardiovascular event prophylaxis
     Route: 048

REACTIONS (4)
  - Acute kidney injury [Unknown]
  - Gait inability [Unknown]
  - Muscular weakness [Unknown]
  - Rhabdomyolysis [Unknown]
